FAERS Safety Report 18079850 (Version 3)
Quarter: 2020Q3

REPORT INFORMATION
  Report Type: Report from Study
  Country: MX (occurrence: MX)
  Receive Date: 20200728
  Receipt Date: 20200929
  Transmission Date: 20201103
  Serious: Yes (Hospitalization, Other)
  Sender: FDA-Public Use
  Company Number: MX-ASTRAZENECA-2020SE91765

PATIENT
  Age: 75 Year
  Sex: Male
  Weight: 75 kg

DRUGS (1)
  1. XIGDUO XR [Suspect]
     Active Substance: DAPAGLIFLOZIN PROPANEDIOL\METFORMIN HYDROCHLORIDE
     Indication: DIABETES MELLITUS
     Dosage: ONE TABLET 5/1000MG, EVERY 24 HOURS
     Route: 048
     Dates: start: 20200713

REACTIONS (16)
  - Off label use [Unknown]
  - Localised infection [Unknown]
  - Dry mouth [Unknown]
  - Impaired healing [Unknown]
  - Thirst [Unknown]
  - Dizziness [Unknown]
  - Poor peripheral circulation [Unknown]
  - Diabetes mellitus inadequate control [Unknown]
  - Blood glucose abnormal [Unknown]
  - Neck pain [Unknown]
  - Taste disorder [Unknown]
  - Limb injury [Unknown]
  - Blood glucose increased [Unknown]
  - Drug ineffective [Unknown]
  - Fatigue [Unknown]
  - Poor quality sleep [Unknown]

NARRATIVE: CASE EVENT DATE: 20200718
